FAERS Safety Report 4662635-0 (Version None)
Quarter: 2005Q2

REPORT INFORMATION
  Report Type: 
  Country: None (occurrence: None)
  Receive Date: 20050516
  Receipt Date: 20050509
  Transmission Date: 20051028
  Serious: Yes (Hospitalization)
  Sender: FDA-Public Use
  Company Number: US-BRISTOL-MYERS SQUIBB COMPANY-12961777

PATIENT
  Age: 58 Year
  Sex: Female
  Weight: 72 kg

DRUGS (8)
  1. CETUXIMAB [Suspect]
     Indication: OVARIAN CANCER
     Dosage: CUMULATIVE TOTAL DOSE TO 08-APR-2005 = 1566 MG.
     Route: 042
     Dates: start: 20050408, end: 20050408
  2. CARBOPLATIN [Suspect]
     Indication: OVARIAN CANCER
     Dosage: CUMULATIVE TOTAL DOSE TO 08-APR-2005 = 606.3 MG.
     Route: 042
     Dates: start: 20050408, end: 20050408
  3. ALEVE [Concomitant]
     Route: 048
     Dates: start: 20020531
  4. EFFEXOR [Concomitant]
     Route: 048
     Dates: start: 20040315
  5. LIPITOR [Concomitant]
     Route: 048
     Dates: start: 20050224
  6. MIRAPEX [Concomitant]
     Route: 048
     Dates: start: 20040315
  7. PRILOSEC [Concomitant]
     Route: 048
     Dates: start: 20040817
  8. VITAMIN B6 [Concomitant]
     Route: 048
     Dates: start: 20020111

REACTIONS (1)
  - PERIPHERAL MOTOR NEUROPATHY [None]
